FAERS Safety Report 9185401 (Version 5)
Quarter: 2013Q2

REPORT INFORMATION
  Report Type: Report from Study
  Country: CA (occurrence: CA)
  Receive Date: 20130325
  Receipt Date: 20130510
  Transmission Date: 20140414
  Serious: Yes (Death, Life-Threatening, Hospitalization, Other)
  Sender: FDA-Public Use
  Company Number: PHHY2013CA028321

PATIENT
  Age: 33 Year
  Sex: Male

DRUGS (5)
  1. CLOZARIL [Suspect]
     Indication: SCHIZOPHRENIA
     Dosage: 250 MG, QD
     Route: 048
     Dates: start: 20100728, end: 20130313
  2. ARIPIPRAZOLE [Concomitant]
     Dosage: UNK UKN, UNK
  3. CRESTOR [Concomitant]
     Dosage: UNK
  4. PANTOLOC ^BYK MADAUS^ [Concomitant]
     Dosage: UNK UKN, UNK
  5. VIT D3 [Concomitant]
     Dosage: UNK

REACTIONS (6)
  - Death [Fatal]
  - Hodgkin^s disease [Recovering/Resolving]
  - Burkitt^s lymphoma [Unknown]
  - Agranulocytosis [Unknown]
  - White blood cell count decreased [Unknown]
  - Neutrophil count decreased [Unknown]
